FAERS Safety Report 21142300 (Version 1)
Quarter: 2022Q3

REPORT INFORMATION
  Report Type: Spontaneous
  Country: US (occurrence: None)
  Receive Date: 20220727
  Receipt Date: 20220727
  Transmission Date: 20221027
  Serious: Yes (Other)
  Sender: FDA-Public Use
  Company Number: None

PATIENT
  Age: 39 Year
  Sex: Female
  Weight: 56.25 kg

DRUGS (5)
  1. XIFAXAN [Suspect]
     Active Substance: RIFAXIMIN
     Indication: Constipation
  2. LUNESTA [Concomitant]
     Active Substance: ESZOPICLONE
  3. Seraqoul [Concomitant]
  4. PROTONIX [Concomitant]
     Active Substance: PANTOPRAZOLE SODIUM
  5. About 100 different vitamins and probiotics to try to repair my stoma [Concomitant]

REACTIONS (2)
  - Gastrointestinal bacterial overgrowth [None]
  - Gastric disorder [None]

NARRATIVE: CASE EVENT DATE: 20220601
